FAERS Safety Report 5280724-7 (Version None)
Quarter: 2007Q1

REPORT INFORMATION
  Report Type: 
  Country: None (occurrence: None)
  Receive Date: 20061221
  Receipt Date: 20061011
  Transmission Date: 20070707
  Serious: No
  Sender: FDA-Public Use
  Company Number: US-CVT-062071

PATIENT
  Age: 74 Year
  Sex: Male

DRUGS (12)
  1. RANEXA [Suspect]
     Indication: ANGINA PECTORIS
     Dosage: 500 MG, BID, ORAL
     Route: 048
     Dates: start: 20060401
  2. LANTUS [Concomitant]
  3. LIPITOR [Concomitant]
  4. AVAPRO [Concomitant]
  5. PLAVIX [Concomitant]
  6. LASIX [Concomitant]
  7. NORVASC [Concomitant]
  8. NITROLINGUAL [Concomitant]
  9. NITROGLYCERIN LA (GLYCERYL TRINITRATE) [Concomitant]
  10. IMDUR [Concomitant]
  11. HYDRALAZINE HCL [Concomitant]
  12. VYTORIN [Concomitant]

REACTIONS (1)
  - PROSTATIC SPECIFIC ANTIGEN INCREASED [None]
